FAERS Safety Report 17837518 (Version 1)
Quarter: 2020Q2

REPORT INFORMATION
  Report Type: Spontaneous
  Country: US (occurrence: US)
  Receive Date: 20200528
  Receipt Date: 20200528
  Transmission Date: 20200714
  Serious: Yes (Death)
  Sender: FDA-Public Use
  Company Number: US-SYNEX-T202002408

PATIENT
  Age: 77 Year

DRUGS (1)
  1. INOMAX [Suspect]
     Active Substance: NITRIC OXIDE
     Indication: COVID-19
     Dosage: 20 PPM (INHALATION)
     Route: 055
     Dates: start: 20200511, end: 20200512

REACTIONS (4)
  - COVID-19 [Fatal]
  - Product use issue [Unknown]
  - Cardiac arrest [Fatal]
  - Product use in unapproved indication [Unknown]

NARRATIVE: CASE EVENT DATE: 20200511
